FAERS Safety Report 24416959 (Version 2)
Quarter: 2024Q4

REPORT INFORMATION
  Report Type: Spontaneous
  Country: US (occurrence: US)
  Receive Date: 20241009
  Receipt Date: 20241031
  Transmission Date: 20250114
  Serious: No
  Sender: ABBVIE
  Company Number: US-ABBVIE-5948686

PATIENT
  Sex: Male

DRUGS (3)
  1. SYNTHROID [Suspect]
     Active Substance: LEVOTHYROXINE SODIUM
     Indication: Hypothyroidism
     Dosage: 25 MCG
     Route: 048
     Dates: start: 2021
  2. SYNTHROID [Suspect]
     Active Substance: LEVOTHYROXINE SODIUM
     Indication: Hypothyroidism
     Dosage: 112MCG?LAST ADMIN DATE: 2024
     Route: 048
     Dates: start: 202405
  3. SYNTHROID [Suspect]
     Active Substance: LEVOTHYROXINE SODIUM
     Indication: Hypothyroidism
     Dosage: 125 MCG?LAST ADMIN DATE: 2024
     Route: 048

REACTIONS (10)
  - Weight increased [Unknown]
  - Blood thyroid stimulating hormone increased [Recovered/Resolved]
  - Weight decreased [Unknown]
  - Blood thyroid stimulating hormone decreased [Unknown]
  - Dyspepsia [Unknown]
  - Nervousness [Unknown]
  - Anxiety [Unknown]
  - Eructation [Not Recovered/Not Resolved]
  - Ventricular extrasystoles [Recovered/Resolved]
  - Extrasystoles [Unknown]

NARRATIVE: CASE EVENT DATE: 20240501
